FAERS Safety Report 8580608-2 (Version None)
Quarter: 2012Q3

REPORT INFORMATION
  Report Type: 
  Country: None (occurrence: None)
  Receive Date: 20120809
  Receipt Date: 20120803
  Transmission Date: 20120928
  Serious: Yes (Hospitalization)
  Sender: FDA-Public Use
  Company Number: AR-AMGEN-US237090

PATIENT
  Age: 51 Year
  Sex: Female

DRUGS (10)
  1. DILTIAZEM HCL [Concomitant]
     Dosage: 60 MG, QD
     Route: 048
  2. AMLODIPINE [Concomitant]
     Dosage: 20 MG, QD
     Route: 048
  3. CINACALCET HYDROCHLORIDE [Suspect]
     Indication: HYPERPARATHYROIDISM SECONDARY
     Dosage: UNK UNK, QD
     Route: 048
     Dates: start: 20070703, end: 20070719
  4. ENALAPRIL MALEATE [Concomitant]
     Dosage: 20 MG, QD
     Route: 048
  5. CALCIUM CARBONATE [Concomitant]
     Dosage: UNK UNK, BID
     Route: 048
  6. EPOGEN [Concomitant]
     Dosage: 10000 IU, QWK
     Route: 058
  7. CALCIUM ACETATE [Concomitant]
     Dosage: UNK UNK, QID
     Route: 048
  8. IRON [Concomitant]
     Dosage: 100 MG, QWK
     Route: 042
  9. FOLIC ACID [Concomitant]
     Dosage: 10 MG, QD
     Route: 048
  10. VITAMIN B COMPLEX CAP [Concomitant]
     Dosage: UNK UNK, QD

REACTIONS (2)
  - HYPERTENSION [None]
  - VISION BLURRED [None]
